FAERS Safety Report 7611601-1 (Version None)
Quarter: 2011Q3

REPORT INFORMATION
  Report Type: 
  Country: None (occurrence: None)
  Receive Date: 20110715
  Receipt Date: 20110706
  Transmission Date: 20111222
  Serious: Yes (Hospitalization)
  Sender: FDA-Public Use
  Company Number: GB-GLAXOSMITHKLINE-B0731079A

PATIENT
  Age: 45 Year
  Sex: Male

DRUGS (13)
  1. MOVIPREP [Concomitant]
  2. VOTRIENT [Suspect]
     Indication: METASTATIC RENAL CELL CARCINOMA
     Dosage: 800MG PER DAY
     Route: 048
     Dates: start: 20110615, end: 20110628
  3. DEXAMETHASONE [Concomitant]
  4. METHADONE HCL [Concomitant]
  5. ORAMORPH SR [Concomitant]
  6. SUNITINIB MALATE [Concomitant]
     Dosage: 25MG PER DAY
     Dates: start: 20110401
  7. ACETAMINOPHEN [Concomitant]
  8. METOCLOPRAMIDE [Concomitant]
  9. SUNITINIB MALATE [Concomitant]
     Dosage: 50MG PER DAY
     Dates: start: 20110401
  10. OMEPRAZOLE [Concomitant]
  11. TRAMADOL HCL [Concomitant]
  12. ZOPICLONE [Concomitant]
  13. LOPERAMIDE HYDROCHLORIDE [Concomitant]

REACTIONS (6)
  - HEPATIC FUNCTION ABNORMAL [None]
  - ABDOMINAL PAIN [None]
  - JAUNDICE [None]
  - VOMITING [None]
  - MALAISE [None]
  - NAUSEA [None]
